FAERS Safety Report 23964674 (Version 2)
Quarter: 2024Q2

REPORT INFORMATION
  Report Type: Spontaneous
  Country: JP (occurrence: JP)
  Receive Date: 20240612
  Receipt Date: 20240613
  Transmission Date: 20240716
  Serious: Yes (Hospitalization)
  Sender: FDA-Public Use
  Company Number: JP-002147023-NVSJ2024JP006700

PATIENT
  Sex: Male

DRUGS (1)
  1. GLYCOPYRRONIUM\INDACATEROL [Suspect]
     Active Substance: GLYCOPYRRONIUM\INDACATEROL
     Indication: Chronic obstructive pulmonary disease
     Dosage: 1DF: INDACATEROL MALEATE 110UG, GLYCOPYRRONIUM BROMIDE 50UG, UNKNOWN
     Route: 055

REACTIONS (1)
  - Chronic obstructive pulmonary disease [Recovering/Resolving]
